FAERS Safety Report 11716946 (Version 1)
Quarter: 2015Q4

REPORT INFORMATION
  Report Type: Spontaneous
  Country: JP (occurrence: JP)
  Receive Date: 20151109
  Receipt Date: 20151109
  Transmission Date: 20160304
  Serious: Yes (Hospitalization)
  Sender: FDA-Public Use
  Company Number: JP-BAYER-2015-458151

PATIENT
  Age: 76 Year
  Sex: Male

DRUGS (1)
  1. NEXAVAR [Suspect]
     Active Substance: SORAFENIB
     Indication: HEPATOCELLULAR CARCINOMA
     Dosage: DAILY DOSE 800 MG
     Route: 048
     Dates: start: 20150905, end: 20151023

REACTIONS (3)
  - Metabolic disorder [Recovering/Resolving]
  - Hepatic function abnormal [Recovering/Resolving]
  - Pancreatitis [Recovering/Resolving]

NARRATIVE: CASE EVENT DATE: 20151023
